FAERS Safety Report 22296965 (Version 1)
Quarter: 2023Q2

REPORT INFORMATION
  Report Type: Report from Study
  Country: US (occurrence: US)
  Receive Date: 20230509
  Receipt Date: 20230509
  Transmission Date: 20230722
  Serious: Yes (Hospitalization)
  Sender: FDA-Public Use
  Company Number: US-JNJFOC-20230514102

PATIENT
  Age: 57 Year
  Sex: Male

DRUGS (2)
  1. USTEKINUMAB [Suspect]
     Active Substance: USTEKINUMAB
     Indication: Crohn^s disease
     Route: 058
  2. USTEKINUMAB [Suspect]
     Active Substance: USTEKINUMAB

REACTIONS (3)
  - Dehydration [Unknown]
  - Muscle spasms [Unknown]
  - Inappropriate schedule of product administration [Unknown]

NARRATIVE: CASE EVENT DATE: 20230430
